FAERS Safety Report 6213945-7 (Version None)
Quarter: 2009Q2

REPORT INFORMATION
  Report Type: 
  Country: None (occurrence: None)
  Receive Date: 20090601
  Receipt Date: 20090601
  Transmission Date: 20091009
  Serious: Yes (Other)
  Sender: FDA-Public Use
  Company Number: None

PATIENT
  Age: 75 Year
  Sex: Male
  Weight: 77.1115 kg

DRUGS (4)
  1. VIDAZA [Suspect]
     Indication: MYELODYSPLASTIC SYNDROME
     Dosage: 75 MG/M2 X 5 DAYS Q 4 WEEKS SQ
     Route: 058
     Dates: start: 20090201, end: 20090525
  2. OMEPRAZOLE [Concomitant]
  3. TIMOLOL MALEATE [Concomitant]
  4. XALATAN [Concomitant]

REACTIONS (4)
  - DRUG INEFFECTIVE [None]
  - INSOMNIA [None]
  - PRURITUS [None]
  - RASH [None]
